FAERS Safety Report 4763414-6 (Version None)
Quarter: 2005Q3

REPORT INFORMATION
  Report Type: 
  Country: None (occurrence: None)
  Receive Date: 20050908
  Receipt Date: 20050905
  Transmission Date: 20060218
  Serious: Yes (Other)
  Sender: FDA-Public Use
  Company Number: PHFR2005GB02964

PATIENT
  Age: 72 Year
  Sex: 0

DRUGS (2)
  1. LAMISIL [Suspect]
     Indication: NAIL INFECTION
     Dosage: 250MG PER DAY
     Route: 048
  2. ATENOLOL [Concomitant]
     Indication: HYPERTENSION
     Route: 048

REACTIONS (2)
  - CONDITION AGGRAVATED [None]
  - IRIDOCYCLITIS [None]
